FAERS Safety Report 7813086-9 (Version None)
Quarter: 2011Q4

REPORT INFORMATION
  Report Type: 
  Country: None (occurrence: None)
  Receive Date: 20111013
  Receipt Date: 20111005
  Transmission Date: 20120403
  Serious: Yes (Other)
  Sender: FDA-Public Use
  Company Number: PHHY2011CA66974

PATIENT
  Sex: Female
  Weight: 99 kg

DRUGS (12)
  1. AXERT [Concomitant]
     Dosage: UNK UKN, PRN
  2. GILENYA [Suspect]
     Indication: RELAPSING-REMITTING MULTIPLE SCLEROSIS
     Dosage: 0.5 MG, UNK
     Route: 048
     Dates: start: 20110525
  3. SEROQUEL [Concomitant]
     Dosage: 25 MG, PRN
  4. ASTHMA-SPRAY [Concomitant]
  5. PULMICORT [Concomitant]
     Dosage: UNK UKN, UNK
  6. DIANE - 35 BCP [Concomitant]
  7. VITAMIN D [Concomitant]
     Dosage: 2000 IU, DAILY
  8. MINOCYCLINE HCL [Concomitant]
  9. IMOVANE [Concomitant]
     Dosage: 10 MG, DAILY
  10. BENTYLOL [Concomitant]
     Dosage: UNK UKN, PRN
  11. BRICANYL [Concomitant]
     Dosage: UNK UKN, UNK
  12. NEXIUM [Concomitant]
     Dosage: UNK UKN, UNK

REACTIONS (11)
  - FEELING ABNORMAL [None]
  - CRYING [None]
  - HYPERSOMNIA [None]
  - IMPAIRED WORK ABILITY [None]
  - AGGRESSION [None]
  - SUICIDAL IDEATION [None]
  - FATIGUE [None]
  - HEADACHE [None]
  - ECZEMA [None]
  - DEPRESSION [None]
  - IRRITABILITY [None]
